FAERS Safety Report 9368778 (Version 1)
Quarter: 2013Q2

REPORT INFORMATION
  Report Type: Report from Study
  Country: US (occurrence: US)
  Receive Date: 20130626
  Receipt Date: 20130626
  Transmission Date: 20140414
  Serious: Yes (Other)
  Sender: FDA-Public Use
  Company Number: US-ROCHE-1239684

PATIENT
  Age: 61 Year
  Sex: Female

DRUGS (1)
  1. XELODA [Suspect]
     Indication: BREAST CANCER
     Dosage: 3 TABLETS OF 500 MG (1500MG) IN MORNING AND 2 TABLETS OF 500 MG (1000MG) IN EVENING
     Route: 048
     Dates: start: 20130213, end: 20130618

REACTIONS (2)
  - Disease progression [Not Recovered/Not Resolved]
  - No therapeutic response [Unknown]
